FAERS Safety Report 26007484 (Version 1)
Quarter: 2025Q4

REPORT INFORMATION
  Report Type: Spontaneous
  Country: US (occurrence: US)
  Receive Date: 20251106
  Receipt Date: 20251106
  Transmission Date: 20260118
  Serious: No
  Sender: DR REDDYS
  Company Number: US-DRL-USA-USA/2025/10/016066

PATIENT
  Age: 29 Year
  Sex: Female
  Weight: 72 kg

DRUGS (1)
  1. SUMATRIPTAN SUCCINATE [Suspect]
     Active Substance: SUMATRIPTAN SUCCINATE
     Indication: Migraine
     Dosage: 6 MG/0.5 ML, SERIAL?NUMBER: BOX #1-BQSB12J6K0NN, BOX #2-6DBLXT0C0TVC, BOX #3-MB0D6GBJFV4Z, BOX #4-?X
     Route: 065
     Dates: start: 20251007

REACTIONS (3)
  - Product dose omission issue [Unknown]
  - Device failure [Unknown]
  - Device defective [Unknown]

NARRATIVE: CASE EVENT DATE: 20251007
